FAERS Safety Report 9781314 (Version 1)
Quarter: 2013Q4

REPORT INFORMATION
  Report Type: Spontaneous
  Country: US (occurrence: None)
  Receive Date: 20131223
  Receipt Date: 20131223
  Transmission Date: 20140711
  Serious: Yes (Other)
  Sender: FDA-Public Use
  Company Number: None

PATIENT
  Age: 44 Year
  Sex: Male
  Weight: 88.91 kg

DRUGS (1)
  1. SINGULAIR [Suspect]
     Indication: URTICARIA CHRONIC
     Dosage: ONCE DAILY
     Dates: start: 20131213, end: 20131213

REACTIONS (3)
  - Mental status changes [None]
  - Psychotic disorder [None]
  - Imprisonment [None]
